FAERS Safety Report 6031166-8 (Version None)
Quarter: 2009Q1

REPORT INFORMATION
  Report Type: 
  Country: None (occurrence: None)
  Receive Date: 20090108
  Receipt Date: 20081229
  Transmission Date: 20090719
  Serious: Yes (Other)
  Sender: FDA-Public Use
  Company Number: BR-ROCHE-605290

PATIENT
  Sex: Female
  Weight: 57 kg

DRUGS (1)
  1. CLONAZEPAM [Suspect]
     Indication: EPILEPSY
     Route: 048

REACTIONS (1)
  - ABORTION SPONTANEOUS [None]
